FAERS Safety Report 17261428 (Version 1)
Quarter: 2020Q1

REPORT INFORMATION
  Report Type: Spontaneous
  Country: US (occurrence: US)
  Receive Date: 20200113
  Receipt Date: 20200113
  Transmission Date: 20200409
  Serious: Yes (Other)
  Sender: FDA-Public Use
  Company Number: US-ALKEM LABORATORIES LIMITED-US-ALKEM-2019-11112

PATIENT

DRUGS (1)
  1. CAPECITABINE. [Suspect]
     Active Substance: CAPECITABINE
     Indication: RECTAL ADENOCARCINOMA
     Dosage: UNK
     Route: 065
     Dates: start: 2018

REACTIONS (4)
  - ECG signs of myocardial ischaemia [Unknown]
  - Ejection fraction decreased [Unknown]
  - Chest pain [Unknown]
  - Troponin increased [Unknown]
